FAERS Safety Report 11418504 (Version 4)
Quarter: 2016Q1

REPORT INFORMATION
  Report Type: Spontaneous
  Country: JP (occurrence: JP)
  Receive Date: 20150826
  Receipt Date: 20160129
  Transmission Date: 20160525
  Serious: Yes (Hospitalization)
  Sender: FDA-Public Use
  Company Number: JP-ABBVIE-15K-087-1449461-00

PATIENT
  Age: 58 Year
  Sex: Male
  Weight: 53 kg

DRUGS (9)
  1. RABEPRAZOLE SODIUM. [Concomitant]
     Active Substance: RABEPRAZOLE SODIUM
     Indication: GASTRITIS PROPHYLAXIS
     Route: 048
     Dates: start: 20150414
  2. HUMIRA [Suspect]
     Active Substance: ADALIMUMAB
     Route: 058
     Dates: start: 20150518
  3. TEPRENONE [Concomitant]
     Active Substance: TEPRENONE
     Indication: GASTRITIS PROPHYLAXIS
     Route: 048
     Dates: start: 20150629, end: 20150629
  4. ELENTAL [Concomitant]
     Active Substance: AMINO ACIDS\CARBOHYDRATES\MINERALS\SOYBEAN OIL\VITAMINS
     Indication: CROHN^S DISEASE
     Dosage: PARENTERAL NUTRITION
     Route: 048
     Dates: start: 20150409
  5. HUMIRA [Suspect]
     Active Substance: ADALIMUMAB
     Indication: CROHN^S DISEASE
     Route: 058
     Dates: start: 20150420, end: 20150420
  6. HUMIRA [Suspect]
     Active Substance: ADALIMUMAB
     Route: 058
     Dates: start: 20150505, end: 20150505
  7. BC LOXOPROFEN SODIUM HYDRATE [Concomitant]
     Indication: ANALGESIC THERAPY
     Route: 048
     Dates: start: 20150629, end: 20150629
  8. MESALAZINE [Concomitant]
     Active Substance: MESALAMINE
     Indication: CROHN^S DISEASE
     Route: 048
     Dates: start: 20150414
  9. PREDNISOLONE SODIUM SUCCINATE [Concomitant]
     Active Substance: PREDNISOLONE SODIUM SUCCINATE
     Indication: CROHN^S DISEASE
     Route: 042
     Dates: start: 20150815, end: 20150828

REACTIONS (9)
  - Hypophagia [Unknown]
  - Decreased appetite [Recovered/Resolved]
  - Dehydration [Unknown]
  - Fluid intake reduced [Unknown]
  - Crohn^s disease [Recovered/Resolved]
  - Anaemia [Unknown]
  - Renal disorder [Recovered/Resolved]
  - Arthralgia [Recovering/Resolving]
  - Mobility decreased [Unknown]

NARRATIVE: CASE EVENT DATE: 2015
